FAERS Safety Report 6986073-0 (Version None)
Quarter: 2010Q3

REPORT INFORMATION
  Report Type: 
  Country: None (occurrence: None)
  Receive Date: 20100910
  Receipt Date: 20100826
  Transmission Date: 20110219
  Serious: Yes (Hospitalization)
  Sender: FDA-Public Use
  Company Number: 017861

PATIENT
  Sex: Female
  Weight: 47 kg

DRUGS (5)
  1. CIMZIA [Suspect]
     Indication: CROHN'S DISEASE
     Dosage: (200 MG 1X/2 WEEKS SUBCUTANEOUS)
     Route: 058
     Dates: start: 20100823
  2. IMURAN [Suspect]
  3. TOPROL-XL [Suspect]
  4. COUMADIN [Suspect]
  5. VITAMIN D [Concomitant]

REACTIONS (8)
  - ANAPHYLACTIC REACTION [None]
  - HAEMOGLOBIN DECREASED [None]
  - HYPERHIDROSIS [None]
  - LIP SWELLING [None]
  - RASH GENERALISED [None]
  - THROAT TIGHTNESS [None]
  - VOMITING [None]
  - WHITE BLOOD CELL COUNT INCREASED [None]
